FAERS Safety Report 24222712 (Version 1)
Quarter: 2024Q3

REPORT INFORMATION
  Report Type: Spontaneous
  Country: US (occurrence: None)
  Receive Date: 20240816
  Receipt Date: 20240816
  Transmission Date: 20241016
  Serious: No
  Sender: Public
  Company Number: None

PATIENT
  Age: 65 Year
  Sex: Female

DRUGS (2)
  1. AMBRISENTAN [Suspect]
     Active Substance: AMBRISENTAN
     Indication: Pulmonary hypertension
     Dosage: 10 MG DAILY ORAL
     Route: 048
  2. TRAZODONE [Suspect]
     Active Substance: TRAZODONE HYDROCHLORIDE

REACTIONS (9)
  - Back pain [None]
  - Pain in extremity [None]
  - Fatigue [None]
  - Insomnia [None]
  - Dyspnoea [None]
  - Nerve injury [None]
  - Insomnia [None]
  - Cough [None]
  - Insurance issue [None]

NARRATIVE: CASE EVENT DATE: 20240815
